FAERS Safety Report 12500945 (Version 1)
Quarter: 2016Q2

REPORT INFORMATION
  Report Type: Spontaneous
  Country: KR (occurrence: KR)
  Receive Date: 20160627
  Receipt Date: 20160627
  Transmission Date: 20160815
  Serious: Yes (Death, Hospitalization)
  Sender: FDA-Public Use
  Company Number: KR-CELGENEUS-286-50794-13104276

PATIENT
  Age: 76 Year
  Sex: Female
  Weight: 46.8 kg

DRUGS (2)
  1. TEICOPLANIN [Concomitant]
     Active Substance: TEICOPLANIN
     Indication: PYREXIA
     Route: 041
     Dates: start: 20131110, end: 20131128
  2. VIDAZA [Suspect]
     Active Substance: AZACITIDINE
     Indication: MYELODYSPLASTIC SYNDROME
     Dosage: 100 MILLIGRAM
     Route: 058
     Dates: start: 20130819, end: 20130826

REACTIONS (3)
  - Septic shock [Fatal]
  - Asthenia [Fatal]
  - Liver abscess [Fatal]

NARRATIVE: CASE EVENT DATE: 20131007
